FAERS Safety Report 24694722 (Version 1)
Quarter: 2024Q4

REPORT INFORMATION
  Report Type: Spontaneous
  Country: IT (occurrence: None)
  Receive Date: 20241204
  Receipt Date: 20241204
  Transmission Date: 20250115
  Serious: Yes (Other)
  Sender: UNICHEM
  Company Number: IT-Unichem Pharmaceuticals (USA) Inc-UCM202411-001591

PATIENT
  Age: 51 Year
  Sex: Female

DRUGS (2)
  1. METRONIDAZOLE [Suspect]
     Active Substance: METRONIDAZOLE
     Indication: Colitis ulcerative
     Route: 048
  2. MESALAMINE [Concomitant]
     Active Substance: MESALAMINE
     Indication: Colitis ulcerative
     Dosage: UNKNOWN

REACTIONS (1)
  - Linear IgA disease [Recovered/Resolved]
